FAERS Safety Report 8825645 (Version 1)
Quarter: 2012Q4

REPORT INFORMATION
  Report Type: Report from Study
  Country: US (occurrence: US)
  Receive Date: 20121004
  Receipt Date: 20121004
  Transmission Date: 20130627
  Serious: No
  Sender: FDA-Public Use
  Company Number: US-VERTEX PHARMACEUTICAL INC.-2012-021262

PATIENT
  Sex: Male
  Weight: 71 kg

DRUGS (4)
  1. VX-950 [Suspect]
     Indication: HEPATITIS C
     Dosage: 750 mg, tid
     Route: 048
     Dates: start: 201206
  2. RIBAVIRIN [Concomitant]
     Indication: HEPATITIS C
     Dosage: 200 mg, qd
     Dates: start: 201206
  3. PEGASYS [Concomitant]
     Indication: HEPATITIS C
     Dosage: 180 ?g, UNK
  4. NAPROXEN [Concomitant]
     Dosage: 250 mg, qd

REACTIONS (3)
  - Rash [Recovered/Resolved]
  - Anal pruritus [Recovered/Resolved]
  - Anaemia [Unknown]
